FAERS Safety Report 4899543-6 (Version None)
Quarter: 2006Q1

REPORT INFORMATION
  Report Type: 
  Country: None (occurrence: None)
  Receive Date: 20060131
  Receipt Date: 20060116
  Transmission Date: 20060701
  Serious: Yes (Death)
  Sender: FDA-Public Use
  Company Number: 060001L06KOR

PATIENT
  Sex: Male

DRUGS (2)
  1. BROMOCRIPTINE MESYLATE [Suspect]
     Indication: INFERTILITY
     Dosage: 2.5 MG, 1 IN 1 DAYS, I.U.
     Route: 015
  2. CLOMIPHENE CITRATE [Suspect]
     Dosage: 150 MG, 1 IN 1 DAYS, I.U.
     Route: 015

REACTIONS (11)
  - APGAR SCORE LOW [None]
  - BODY TEMPERATURE INCREASED [None]
  - BREECH EXTRACTION [None]
  - DRUG EXPOSURE DURING PREGNANCY [None]
  - INTRA-UTERINE DEATH [None]
  - MULTIPLE PREGNANCY [None]
  - PREMATURE BABY [None]
  - PREMATURE LABOUR [None]
  - SMALL FOR DATES BABY [None]
  - STILLBIRTH [None]
  - WHITE BLOOD CELL COUNT INCREASED [None]
